FAERS Safety Report 14710212 (Version 1)
Quarter: 2018Q2

REPORT INFORMATION
  Report Type: Spontaneous
  Country: FR (occurrence: FR)
  Receive Date: 20180403
  Receipt Date: 20180403
  Transmission Date: 20180711
  Serious: Yes (Hospitalization)
  Sender: FDA-Public Use
  Company Number: FR-TEVA-2018-FR-875381

PATIENT
  Age: 71 Year
  Sex: Female
  Weight: 54 kg

DRUGS (1)
  1. MYOCET [Suspect]
     Active Substance: DOXORUBICIN
     Indication: OVARIAN CANCER
     Route: 041

REACTIONS (6)
  - Back pain [Recovered/Resolved]
  - Malaise [Recovered/Resolved]
  - Feeling hot [Recovered/Resolved]
  - Visual acuity reduced transiently [Recovered/Resolved]
  - Chest discomfort [Recovered/Resolved]
  - Palpitations [Recovered/Resolved]
